FAERS Safety Report 6917570-1 (Version None)
Quarter: 2010Q3

REPORT INFORMATION
  Report Type: 
  Country: None (occurrence: None)
  Receive Date: 20100810
  Receipt Date: 20100802
  Transmission Date: 20110219
  Serious: Yes (Hospitalization)
  Sender: FDA-Public Use
  Company Number: US-ABBOTT-10P-163-0660678-00

PATIENT
  Sex: Female
  Weight: 65.83 kg

DRUGS (3)
  1. TRILIPIX [Suspect]
     Indication: BLOOD TRIGLYCERIDES INCREASED
     Dates: start: 20100712, end: 20100712
  2. LISINOPRIL [Concomitant]
     Indication: HEADACHE
  3. SYNTHROID [Concomitant]
     Indication: PRODUCT USED FOR UNKNOWN INDICATION

REACTIONS (3)
  - GASTRITIS [None]
  - HEPATIC ENZYME INCREASED [None]
  - PAIN [None]
